FAERS Safety Report 7286749-4 (Version None)
Quarter: 2011Q1

REPORT INFORMATION
  Report Type: 
  Country: None (occurrence: None)
  Receive Date: 20110210
  Receipt Date: 20110128
  Transmission Date: 20110831
  Serious: No
  Sender: FDA-Public Use
  Company Number: US-CELGENEUS-163-21880-10121530

PATIENT
  Sex: Female
  Weight: 78.02 kg

DRUGS (12)
  1. LISINOPRIL [Concomitant]
     Route: 048
     Dates: start: 20101213
  2. LEVOTHYROXINE SODIUM [Concomitant]
     Route: 048
     Dates: start: 20101213
  3. AMLODIPINE [Concomitant]
     Route: 048
     Dates: start: 20101213
  4. LYRICA [Concomitant]
     Route: 048
     Dates: start: 20101213
  5. REVLIMID [Suspect]
     Indication: MULTIPLE MYELOMA
     Route: 048
     Dates: start: 20101208, end: 20101226
  6. ZETIA [Concomitant]
     Route: 048
     Dates: start: 20101213
  7. ACIPHEX [Concomitant]
     Route: 048
     Dates: start: 20101213
  8. WARFARIN SODIUM [Concomitant]
     Route: 048
     Dates: start: 20101213
  9. TRIAMTERENE AND HYDROCHLOROTHIAZIDE [Concomitant]
     Dosage: 37.5MG-25MG
     Route: 048
     Dates: start: 20101213
  10. ACTONEL [Concomitant]
     Route: 048
     Dates: start: 20101213
  11. DEXAMETHASONE [Concomitant]
     Route: 048
     Dates: start: 20101213
  12. SENSIPAR [Concomitant]
     Route: 048
     Dates: start: 20101213

REACTIONS (6)
  - FATIGUE [None]
  - PAIN IN EXTREMITY [None]
  - DYSKINESIA [None]
  - ABDOMINAL PAIN UPPER [None]
  - DIARRHOEA [None]
  - ASTHENIA [None]
